FAERS Safety Report 21643792 (Version 1)
Quarter: 2022Q4

REPORT INFORMATION
  Report Type: Spontaneous
  Country: SE (occurrence: SE)
  Receive Date: 20221125
  Receipt Date: 20221125
  Transmission Date: 20230113
  Serious: Yes (Other)
  Sender: FDA-Public Use
  Company Number: SE-MLMSERVICE-20221114-3917561-1

PATIENT
  Age: 67 Year
  Sex: Male

DRUGS (8)
  1. CARBOPLATIN [Suspect]
     Active Substance: CARBOPLATIN
     Indication: Myasthenic syndrome
     Dosage: UNK, CYCLIC (AUC 5 DAY 1)
     Dates: start: 2018, end: 2018
  2. CARBOPLATIN [Suspect]
     Active Substance: CARBOPLATIN
     Indication: Neuroendocrine carcinoma of the skin
  3. CARBOPLATIN [Suspect]
     Active Substance: CARBOPLATIN
     Indication: Metastases to lung
  4. ETOPOSIDE [Suspect]
     Active Substance: ETOPOSIDE
     Indication: Myasthenic syndrome
     Dosage: 100 MG/M2, CYCLIC [DAYS 1-3 IN 21 DAY CYCLES]
     Dates: start: 2018
  5. ETOPOSIDE [Suspect]
     Active Substance: ETOPOSIDE
     Indication: Neuroendocrine carcinoma of the skin
     Dosage: UNK, CYCLIC (REDUCED TO 80% DOSE,THE 3RD AND 4TH DOSES FURTHER REDUCED TO 75%. (TOTAL OF 4CYCLES))
     Dates: start: 2018, end: 2018
  6. ETOPOSIDE [Suspect]
     Active Substance: ETOPOSIDE
     Indication: Metastases to lung
  7. AMIFAMPRIDINE [Concomitant]
     Active Substance: AMIFAMPRIDINE
     Indication: Myasthenic syndrome
     Dosage: UNK
     Dates: start: 2017
  8. PYRIDOSTIGMINE [Concomitant]
     Active Substance: PYRIDOSTIGMINE
     Indication: Myasthenic syndrome
     Dosage: UNK
     Dates: start: 2017

REACTIONS (1)
  - Febrile neutropenia [Unknown]

NARRATIVE: CASE EVENT DATE: 20180101
